FAERS Safety Report 12397562 (Version 1)
Quarter: 2016Q2

REPORT INFORMATION
  Report Type: Spontaneous
  Country: US (occurrence: None)
  Receive Date: 20160523
  Receipt Date: 20160523
  Transmission Date: 20160815
  Serious: No
  Sender: FDA-Public Use
  Company Number: None

PATIENT
  Age: 21 Year
  Sex: Female

DRUGS (23)
  1. NABUMETONE. [Concomitant]
     Active Substance: NABUMETONE
  2. ABILIFY [Concomitant]
     Active Substance: ARIPIPRAZOLE
  3. ADVAIR HFA [Concomitant]
     Active Substance: FLUTICASONE PROPIONATE\SALMETEROL XINAFOATE
  4. CELECOXIB. [Concomitant]
     Active Substance: CELECOXIB
  5. TRAZODONE [Concomitant]
     Active Substance: TRAZODONE HYDROCHLORIDE
  6. PREDNISONE. [Concomitant]
     Active Substance: PREDNISONE
  7. TAMIFLU [Suspect]
     Active Substance: OSELTAMIVIR PHOSPHATE
  8. ARIPRPRAZOLE [Concomitant]
     Active Substance: ARIPIPRAZOLE
  9. ESCITALOPRAM [Concomitant]
     Active Substance: ESCITALOPRAM OXALATE
  10. ONDANSETRON [Concomitant]
     Active Substance: ONDANSETRON
  11. PHENAZOPYRID [Concomitant]
  12. FLUOXETINE [Concomitant]
     Active Substance: FLUOXETINE HYDROCHLORIDE
  13. HYDROCO/APAP [Concomitant]
     Active Substance: ACETAMINOPHEN\HYDROCODONE
  14. AMITRIPTYLIN [Concomitant]
     Active Substance: AMITRIPTYLINE
  15. DICYCLOMINE [Concomitant]
     Active Substance: DICYCLOMINE HYDROCHLORIDE
  16. FLOCONAZOLE [Concomitant]
  17. LORAZEPAM. [Concomitant]
     Active Substance: LORAZEPAM
  18. MOVIPREP [Concomitant]
     Active Substance: ASCORBIC ACID\POLYETHYLENE GLYCOL 3350\POTASSIUM CHLORIDE\SODIUM ASCORBATE\SODIUM CHLORIDE\SODIUM SULFATE
  19. XELJANZ [Suspect]
     Active Substance: TOFACITINIB CITRATE
     Indication: RHEUMATOID ARTHRITIS
     Route: 048
     Dates: start: 20160426, end: 20160519
  20. AMOX/KCLAV [Concomitant]
  21. CIPROFLOXACN [Concomitant]
     Active Substance: CIPROFLOXACIN
  22. GABAPENTIN. [Concomitant]
     Active Substance: GABAPENTIN
  23. OMPRAZOLE [Concomitant]
     Active Substance: OMEPRAZOLE

REACTIONS (3)
  - Bladder pain [None]
  - Fatigue [None]
  - Drug ineffective [None]

NARRATIVE: CASE EVENT DATE: 20160519
